FAERS Safety Report 23712988 (Version 1)
Quarter: 2024Q2

REPORT INFORMATION
  Report Type: Spontaneous
  Country: CA (occurrence: CA)
  Receive Date: 20240405
  Receipt Date: 20240405
  Transmission Date: 20240715
  Serious: Yes (Other)
  Sender: FDA-Public Use
  Company Number: CA-SANDOZ-SDZ2024CA036150

PATIENT
  Age: 91 Year
  Sex: Female

DRUGS (2)
  1. AMLODIPINE [Suspect]
     Active Substance: AMLODIPINE BESYLATE
     Indication: Hypertension
     Dosage: 10 MG
     Route: 048
  2. OMEPRAZOLE [Suspect]
     Active Substance: OMEPRAZOLE
     Indication: Gastrooesophageal reflux disease
     Dosage: 20 MG
     Route: 065

REACTIONS (5)
  - Diarrhoea [Recovered/Resolved]
  - Headache [Recovered/Resolved]
  - Oral discomfort [Recovered/Resolved]
  - Peripheral swelling [Recovered/Resolved]
  - Tongue discomfort [Recovered/Resolved]
